FAERS Safety Report 12194363 (Version 3)
Quarter: 2016Q3

REPORT INFORMATION
  Report Type: Spontaneous
  Country: RU (occurrence: RU)
  Receive Date: 20160321
  Receipt Date: 20160713
  Transmission Date: 20161109
  Serious: Yes (Hospitalization)
  Sender: FDA-Public Use
  Company Number: RU-ABBVIE-16K-251-1585731-00

PATIENT
  Age: 13 Year
  Sex: Female

DRUGS (6)
  1. HUMIRA [Suspect]
     Active Substance: ADALIMUMAB
     Indication: JUVENILE IDIOPATHIC ARTHRITIS
     Route: 058
     Dates: start: 20160226, end: 201603
  2. HEPARIN [Concomitant]
     Active Substance: HEPARIN SODIUM
     Indication: PRODUCT USED FOR UNKNOWN INDICATION
     Dosage: 10 UNITS/KILOGRAM/HOUR
  3. METHOTREXATE. [Concomitant]
     Active Substance: METHOTREXATE
     Indication: JUVENILE IDIOPATHIC ARTHRITIS
  4. SALOFALK [Concomitant]
     Active Substance: MESALAMINE
     Indication: COLITIS ULCERATIVE
     Dates: start: 20160408
  5. CEFTRIAXONE. [Concomitant]
     Active Substance: CEFTRIAXONE
     Indication: PRODUCT USED FOR UNKNOWN INDICATION
     Dates: start: 20160311, end: 20160322
  6. SALOFALK [Concomitant]
     Active Substance: MESALAMINE
     Dates: start: 2016, end: 2016

REACTIONS (24)
  - Inflammatory bowel disease [Recovering/Resolving]
  - Vasculitis [Recovered/Resolved]
  - Vomiting [Recovered/Resolved]
  - Meningitis [Recovered/Resolved]
  - Purulent discharge [Recovered/Resolved]
  - Maxillary sinus pseudocyst [Not Recovered/Not Resolved]
  - Colitis erosive [Unknown]
  - Duodenogastric reflux [Not Recovered/Not Resolved]
  - Body temperature increased [Recovered/Resolved]
  - Nausea [Recovering/Resolving]
  - Nephritis [Recovered/Resolved]
  - Anaemia [Not Recovered/Not Resolved]
  - T-lymphocyte count abnormal [Unknown]
  - Gastritis [Not Recovered/Not Resolved]
  - Leukocytosis [Recovered/Resolved]
  - Blood creatinine increased [Recovered/Resolved]
  - Aspartate aminotransferase increased [Recovered/Resolved]
  - Lacunar stroke [Recovered/Resolved]
  - Acute kidney injury [Recovering/Resolving]
  - Headache [Recovered/Resolved]
  - Erythema nodosum [Recovered/Resolved]
  - Proctitis ulcerative [Unknown]
  - Proctitis ulcerative [Unknown]
  - Colitis ulcerative [Unknown]

NARRATIVE: CASE EVENT DATE: 2016
